FAERS Safety Report 5034110-5 (Version None)
Quarter: 2006Q2

REPORT INFORMATION
  Report Type: 
  Country: None (occurrence: None)
  Receive Date: 20060626
  Receipt Date: 20060619
  Transmission Date: 20061013
  Serious: Yes (Other)
  Sender: FDA-Public Use
  Company Number: PHNU2006DE02309

PATIENT
  Sex: Female

DRUGS (1)
  1. SYNTOCINON [Suspect]
     Dosage: FETAL DRUG EXPOSURE VIA LACTATION

REACTIONS (1)
  - UNDERWEIGHT [None]
